FAERS Safety Report 13683152 (Version 2)
Quarter: 2017Q3

REPORT INFORMATION
  Report Type: Spontaneous
  Country: TR (occurrence: TR)
  Receive Date: 20170623
  Receipt Date: 20170712
  Transmission Date: 20171127
  Serious: Yes (Death, Other)
  Sender: FDA-Public Use
  Company Number: TR-ACTELION-A-CH2017-155375

PATIENT
  Age: 19 Year
  Sex: Female
  Weight: 48.7 kg

DRUGS (11)
  1. OPSUMIT [Suspect]
     Active Substance: MACITENTAN
     Indication: PULMONARY ARTERIAL HYPERTENSION
     Dosage: 10 MG, QD
     Route: 048
     Dates: start: 201702, end: 20170526
  2. URSODEOXYCHOLIC ACID [Suspect]
     Active Substance: URSODIOL
     Indication: ABDOMINAL PAIN
     Dosage: 1 DF, BID
     Route: 048
     Dates: start: 20170508
  3. FLUTICASONE PROPIONATE. [Concomitant]
     Active Substance: FLUTICASONE PROPIONATE
  4. HEPARIN [Concomitant]
     Active Substance: HEPARIN SODIUM
  5. FUROSEMIDE. [Concomitant]
     Active Substance: FUROSEMIDE
  6. ASPIRIN. [Concomitant]
     Active Substance: ASPIRIN
  7. PROPANOLOL [Concomitant]
     Active Substance: PROPRANOLOL HYDROCHLORIDE
  8. ALDACTONE [Concomitant]
     Active Substance: SPIRONOLACTONE
  9. COUMADIN [Concomitant]
     Active Substance: WARFARIN SODIUM
  10. DIGOXIN. [Concomitant]
     Active Substance: DIGOXIN
  11. ENOXAPARIN [Concomitant]
     Active Substance: ENOXAPARIN

REACTIONS (15)
  - Atrial flutter [Fatal]
  - Hepatic failure [Unknown]
  - Blood bilirubin increased [Fatal]
  - Abdominal pain [Fatal]
  - Bilirubin conjugated increased [Fatal]
  - Cerebrovascular accident [Unknown]
  - Exchange blood transfusion [Fatal]
  - Encephalopathy [Fatal]
  - Nausea [Fatal]
  - Aspartate aminotransferase abnormal [Unknown]
  - Abdominal distension [Fatal]
  - Alanine aminotransferase abnormal [Unknown]
  - Right-to-left cardiac shunt [Fatal]
  - Polycythaemia [Fatal]
  - Hyperbilirubinaemia [Fatal]

NARRATIVE: CASE EVENT DATE: 20170508
